FAERS Safety Report 13495439 (Version 2)
Quarter: 2017Q2

REPORT INFORMATION
  Report Type: Spontaneous
  Country: KR (occurrence: KR)
  Receive Date: 20170428
  Receipt Date: 20170509
  Transmission Date: 20170830
  Serious: Yes (Hospitalization, Other)
  Sender: FDA-Public Use
  Company Number: KR-009507513-1509KOR013394

PATIENT
  Age: 65 Year
  Sex: Male
  Weight: 65 kg

DRUGS (11)
  1. TAXOTERE [Concomitant]
     Active Substance: DOCETAXEL
     Dosage: 40 MG, ONCE (STRENGHT: 20MG/ML) CYCLE 1
     Route: 042
     Dates: start: 20150820, end: 20150820
  2. DEXAMETHASONE SODIUM PHOSPHATE. [Concomitant]
     Active Substance: DEXAMETHASONE SODIUM PHOSPHATE
     Dosage: 8 MG (STRENGHT 5MG/ML), BID
     Route: 042
     Dates: start: 20150821, end: 20150821
  3. PANTOLINE TABLETS [Concomitant]
     Indication: GASTRITIS PROPHYLAXIS
     Dosage: 40 MG, QD
     Route: 048
     Dates: start: 20150820, end: 20150826
  4. DEXAMETHASONE SODIUM PHOSPHATE. [Concomitant]
     Active Substance: DEXAMETHASONE SODIUM PHOSPHATE
     Indication: ANTIEMETIC SUPPORTIVE CARE
     Dosage: 10 MG (STRENGHT 5MG/ML), ONCE
     Route: 042
     Dates: start: 20150820, end: 20150820
  5. TAXOTERE [Concomitant]
     Active Substance: DOCETAXEL
     Indication: CHEMOTHERAPY
     Dosage: 80 MG, ONCE (STRENGHT: 80MG/4ML) CYCLE 1
     Route: 042
     Dates: start: 20150820, end: 20150820
  6. FLUOROURACIL. [Concomitant]
     Active Substance: FLUOROURACIL
     Indication: CHEMOTHERAPY
     Dosage: 2000 MG, QD (STRENGTH: 1000MG/20ML) CYCLE 1
     Route: 042
     Dates: start: 20150820, end: 20150822
  7. FLUOROURACIL. [Concomitant]
     Active Substance: FLUOROURACIL
     Dosage: 50 MG, QD (STRENGTH: 50MG/5ML) CYCLE 1
     Route: 042
     Dates: start: 20150820, end: 20150822
  8. DEXAMETHASONE SODIUM PHOSPHATE. [Concomitant]
     Active Substance: DEXAMETHASONE SODIUM PHOSPHATE
     Dosage: 8 MG (STRENGHT 5MG/ML), ONCE
     Route: 042
     Dates: start: 20150820, end: 20150820
  9. EMEND (FOSAPREPITANT DIMEGLUMINE) [Suspect]
     Active Substance: FOSAPREPITANT DIMEGLUMINE
     Indication: PROPHYLAXIS OF NAUSEA AND VOMITING
     Dosage: 150 MG, ONCE
     Route: 042
     Dates: start: 20150820, end: 20150820
  10. SANCUSO [Concomitant]
     Active Substance: GRANISETRON
     Indication: ANTIEMETIC SUPPORTIVE CARE
     Dosage: 34.3 MG, QD (TRANSCUTANEOUS)
     Route: 062
     Dates: start: 20150819, end: 20150826
  11. PETHIDINE INJECTION BP [Concomitant]
     Indication: PREMEDICATION
     Dosage: 25 MG, ONCE
     Route: 030
     Dates: start: 20150817, end: 20150817

REACTIONS (3)
  - Gastrointestinal infection [Recovered/Resolved]
  - Hiccups [Recovered/Resolved]
  - Febrile neutropenia [Recovered/Resolved]

NARRATIVE: CASE EVENT DATE: 20150820
